FAERS Safety Report 9447915 (Version 2)
Quarter: 2013Q3

REPORT INFORMATION
  Report Type: Spontaneous
  Country: HU (occurrence: HU)
  Receive Date: 20130808
  Receipt Date: 20130812
  Transmission Date: 20140515
  Serious: Yes (Life-Threatening, Hospitalization)
  Sender: FDA-Public Use
  Company Number: PHBS2007HU11736

PATIENT
  Age: 49 Year
  Sex: Female
  Weight: 77.4 kg

DRUGS (6)
  1. GLIVEC [Suspect]
     Indication: CHRONIC MYELOID LEUKAEMIA
     Dosage: 400 MG, DAILY
     Dates: start: 20061116
  2. GLIVEC [Suspect]
     Dosage: 100 MG, DAILY
  3. GLIVEC [Suspect]
     Dosage: 400 MG, DAILY
  4. ALLOPURINOL [Concomitant]
     Dosage: 300 MG, DAILY
     Route: 065
  5. METOPROLOL [Concomitant]
     Dosage: UNK UKN, UNK
     Route: 065
  6. AMLODIPINE [Concomitant]
     Dosage: UNK UKN, UNK
     Route: 065

REACTIONS (19)
  - Tumour lysis syndrome [Unknown]
  - Asthenia [Unknown]
  - Abdominal pain [Unknown]
  - Hypotension [Unknown]
  - Anuria [Unknown]
  - Azotaemia [Unknown]
  - Metabolic acidosis [Unknown]
  - Hypoxia [Unknown]
  - Vomiting [Unknown]
  - Diarrhoea [Unknown]
  - Pyrexia [Unknown]
  - General physical health deterioration [Unknown]
  - Hyperhidrosis [Unknown]
  - Oliguria [Unknown]
  - Fluid retention [Unknown]
  - Sepsis [Unknown]
  - White blood cell count decreased [Unknown]
  - Pulmonary oedema [Unknown]
  - Hepatosplenomegaly [Unknown]
